FAERS Safety Report 19694761 (Version 1)
Quarter: 2021Q3

REPORT INFORMATION
  Report Type: Spontaneous
  Country: DE (occurrence: DE)
  Receive Date: 20210813
  Receipt Date: 20210813
  Transmission Date: 20211014
  Serious: Yes (Hospitalization)
  Sender: FDA-Public Use
  Company Number: DE-TEVA-2021-DE-1940765

PATIENT
  Age: 85 Year
  Sex: Male
  Weight: 85 kg

DRUGS (5)
  1. LERCANIDIPIN [Suspect]
     Active Substance: LERCANIDIPINE
     Dosage: 20 MILLIGRAM DAILY; 1?0?0?0,
     Route: 048
  2. TORASEMID [Suspect]
     Active Substance: TORSEMIDE
     Dosage: 10 MILLIGRAM DAILY; 1?0?0?0
     Route: 048
  3. HYDROCHLOROTHIAZID/RAMIPRIL [Suspect]
     Active Substance: HYDROCHLOROTHIAZIDE\RAMIPRIL
     Dosage: 1 DOSAGE FORMS DAILY; 25|5 MG, 1?0?0?0,
     Route: 048
  4. CARVEDILOL. [Suspect]
     Active Substance: CARVEDILOL
     Dosage: 1 DOSAGE FORMS DAILY; 12.5 MG, 0.5?0?0.5?0
     Route: 048
  5. UMECLIDINIUMBROMID/VILANTEROL [Concomitant]
     Dosage: 1 DOSAGE FORMS DAILY; 62.5|25 MCG, 1?0?0?0
     Route: 055

REACTIONS (3)
  - Pain [Unknown]
  - Wound [Unknown]
  - Fall [Unknown]
